FAERS Safety Report 8330726 (Version 2)
Quarter: 2018Q3

REPORT INFORMATION
  Report Type: Report from Study
  Country: DK (occurrence: DK)
  Receive Date: 20120111
  Receipt Date: 20180803
  Transmission Date: 20181010
  Serious: Yes (Other)
  Sender: FDA-Public Use
  Company Number: DK-ROCHE-1028844

PATIENT

DRUGS (5)
  1. CAPECITABINE. [Suspect]
     Active Substance: CAPECITABINE
     Indication: SQUAMOUS CELL CARCINOMA
     Route: 048
  2. PACLITAXEL. [Suspect]
     Active Substance: PACLITAXEL
     Indication: SQUAMOUS CELL CARCINOMA
     Route: 042
  3. DEXAMETHAZONE [Concomitant]
     Active Substance: DEXAMETHASONE
     Indication: PREMEDICATION
     Route: 042
  4. NIZAX [Concomitant]
     Active Substance: NIZATIDINE
     Indication: PREMEDICATION
     Route: 042
  5. TAVEGYL [Concomitant]
     Active Substance: CLEMASTINE FUMARATE
     Indication: PREMEDICATION
     Route: 042

REACTIONS (17)
  - Palmar-plantar erythrodysaesthesia syndrome [Unknown]
  - Hypersensitivity [Unknown]
  - Mucosal inflammation [Unknown]
  - Alopecia totalis [Unknown]
  - Neurotoxicity [Unknown]
  - Urogenital disorder [Unknown]
  - Arthralgia [Unknown]
  - Neutrophil count abnormal [Unknown]
  - Cardiotoxicity [Unknown]
  - Diarrhoea [Unknown]
  - Myalgia [Unknown]
  - Red blood cell abnormality [Unknown]
  - Infection [Unknown]
  - Nausea [Unknown]
  - Platelet count abnormal [Unknown]
  - Vomiting [Unknown]
  - White blood cell count abnormal [Unknown]
